FAERS Safety Report 8744256 (Version 2)
Quarter: 2012Q4

REPORT INFORMATION
  Report Type: 
  Country: US (occurrence: US)
  Receive Date: 20120824
  Receipt Date: 20120920
  Transmission Date: 20130627
  Serious: Yes (Other)
  Sender: FDA-Public Use
  Company Number: CHPA2012US018562

PATIENT
  Sex: Female

DRUGS (1)
  1. ALPHA-KERI MOISTURE RICH OIL [Suspect]
     Indication: DRY SKIN
     Dosage: Unk, Everyday
     Route: 061
     Dates: start: 1992

REACTIONS (2)
  - Scleroderma [Recovered/Resolved]
  - Therapeutic response unexpected [Unknown]
